FAERS Safety Report 20006751 (Version 17)
Quarter: 2022Q1

REPORT INFORMATION
  Report Type: Report from Study
  Country: CN (occurrence: None)
  Receive Date: 20211028
  Receipt Date: 20220216
  Transmission Date: 20220423
  Serious: Yes (Hospitalization, Other)
  Sender: FDA-Public Use
  Company Number: CN-ROCHE-2857733

PATIENT
  Age: 66 Year
  Sex: Male
  Weight: 64 kg

DRUGS (31)
  1. ATEZOLIZUMAB [Suspect]
     Active Substance: ATEZOLIZUMAB
     Indication: Small cell lung cancer extensive stage
     Dosage: MOST RECENT DOSE OF ATEZOLIZUMAB ON 10/JUN/2021, 21/JUL/2021
     Route: 041
     Dates: start: 20210521
  2. BEVACIZUMAB [Suspect]
     Active Substance: BEVACIZUMAB
     Indication: Small cell lung cancer extensive stage
     Dosage: DOSE OF LAST BLINDED BEVACIZUMAB ADMINISTERED ON 21/MAY/2021 PRIOR TO AE/SAE
     Route: 042
     Dates: start: 20210521
  3. CARBOPLATIN [Suspect]
     Active Substance: CARBOPLATIN
     Indication: Small cell lung cancer extensive stage
     Dosage: MOST RECENT DOSE OF CARBOPLATIN ADMINISTERED ON 10/JUN/2021 PRIOR TO AE ONSET. DOSE OF LAST CARBOPLA
     Route: 042
     Dates: start: 20210521
  4. ETOPOSIDE [Suspect]
     Active Substance: ETOPOSIDE
     Indication: Small cell lung cancer extensive stage
     Dosage: DOSE OF LAST ETOPOSIDE ADMINISTERED PRIOR TO AE/SAE (166 MG) ON 12/JUN/2021, 23/JUL/2021 (125).?ON 1
     Route: 042
     Dates: start: 20210521
  5. AMBROXOL [Concomitant]
     Active Substance: AMBROXOL
     Indication: Cough
     Route: 042
     Dates: start: 20210623, end: 20210705
  6. AMBROXOL [Concomitant]
     Active Substance: AMBROXOL
     Dates: start: 20210610, end: 20210903
  7. FLUCONAZOLE [Concomitant]
     Active Substance: FLUCONAZOLE
     Dates: start: 20210630
  8. FLUCONAZOLE [Concomitant]
     Active Substance: FLUCONAZOLE
     Route: 042
     Dates: start: 20210606, end: 20210705
  9. ACETYLCYSTEINE [Concomitant]
     Active Substance: ACETYLCYSTEINE
     Indication: Pneumonia
     Dates: start: 20210629, end: 20210630
  10. RAMOSETRON HYDROCHLORIDE [Concomitant]
     Active Substance: RAMOSETRON HYDROCHLORIDE
     Route: 042
     Dates: start: 20210521, end: 20210903
  11. SODIUM BICARBONATE [Concomitant]
     Active Substance: SODIUM BICARBONATE
     Route: 048
     Dates: start: 20210521, end: 20210612
  12. NIFEDIPINE [Concomitant]
     Active Substance: NIFEDIPINE
     Indication: Hypertension
     Dates: start: 19910101
  13. BUCINNAZINE [Concomitant]
     Active Substance: BUCINNAZINE
  14. LIDOCAINE [Concomitant]
     Active Substance: LIDOCAINE
     Indication: Local anaesthesia
     Route: 058
     Dates: start: 20210521, end: 20210901
  15. SODIUM CHLORIDE [Concomitant]
     Active Substance: SODIUM CHLORIDE
     Indication: Hyponatraemia
     Route: 042
     Dates: start: 20210721, end: 20210723
  16. FUROSEMIDE [Concomitant]
     Active Substance: FUROSEMIDE
     Indication: Brain natriuretic peptide increased
     Route: 042
     Dates: start: 20210702, end: 20210702
  17. FUROSEMIDE [Concomitant]
     Active Substance: FUROSEMIDE
     Indication: Cardiac failure
     Route: 048
     Dates: start: 20211204, end: 20211204
  18. METHYLPREDNISOLONE SODIUM SUCCINATE [Concomitant]
     Active Substance: METHYLPREDNISOLONE SODIUM SUCCINATE
  19. RECOMBINANT HUMAN GRANULOCYTE STIMULATING FACTOR (UNK INGREDIENTS) [Concomitant]
     Indication: White blood cell count decreased
  20. RECOMBINANT HUMAN GRANULOCYTE STIMULATING FACTOR (UNK INGREDIENTS) [Concomitant]
     Indication: Neutrophil count decreased
  21. PREDNISONE ACETATE [Concomitant]
     Active Substance: PREDNISONE ACETATE
  22. SPIRONOLACTONE [Concomitant]
     Active Substance: SPIRONOLACTONE
     Indication: Cardiac failure
     Route: 048
     Dates: start: 20211204, end: 20211204
  23. ALBUMIN HUMAN [Concomitant]
     Active Substance: ALBUMIN HUMAN
     Indication: Hypoalbuminaemia
     Dates: start: 20211206, end: 20211209
  24. ALBUMIN HUMAN [Concomitant]
     Active Substance: ALBUMIN HUMAN
     Route: 042
     Dates: start: 20211213, end: 20211216
  25. AMIODARONE HYDROCHLORIDE [Concomitant]
     Active Substance: AMIODARONE HYDROCHLORIDE
     Indication: Cardiac disorder
     Route: 042
     Dates: start: 20211214, end: 20211214
  26. METOPROLOL SUCCINATE [Concomitant]
     Active Substance: METOPROLOL SUCCINATE
     Indication: Cardiac disorder
     Route: 048
     Dates: start: 20211214, end: 20211214
  27. DEXAMETHASONE SODIUM PHOSPHATE [Concomitant]
     Active Substance: DEXAMETHASONE SODIUM PHOSPHATE
  28. BROMHEXINE HYDROCHLORIDE [Concomitant]
     Active Substance: BROMHEXINE HYDROCHLORIDE
  29. POTASSIUM CITRATE [Concomitant]
     Active Substance: POTASSIUM CITRATE
  30. ENDOSTATIN [Concomitant]
     Active Substance: ENDOSTATIN
  31. LOXOPROFEN SODIUM [Concomitant]
     Active Substance: LOXOPROFEN SODIUM

REACTIONS (2)
  - Bacteraemia [Recovered/Resolved]
  - Febrile neutropenia [Recovered/Resolved]

NARRATIVE: CASE EVENT DATE: 20210622
